FAERS Safety Report 16348406 (Version 1)
Quarter: 2019Q2

REPORT INFORMATION
  Report Type: Spontaneous
  Country: IT (occurrence: IT)
  Receive Date: 20190523
  Receipt Date: 20190523
  Transmission Date: 20190711
  Serious: Yes (Other)
  Sender: FDA-Public Use
  Company Number: IT-SAMSUNG BIOEPIS-SB-2019-11788

PATIENT
  Age: 50 Year
  Sex: Female

DRUGS (1)
  1. BENEPALI [Suspect]
     Active Substance: ETANERCEPT
     Indication: RHEUMATOID ARTHRITIS
     Route: 058
     Dates: start: 20181017, end: 20181129

REACTIONS (3)
  - Musculoskeletal stiffness [Unknown]
  - Therapy non-responder [Unknown]
  - Synovitis [Unknown]

NARRATIVE: CASE EVENT DATE: 20181129
